FAERS Safety Report 5271057-3 (Version None)
Quarter: 2007Q1

REPORT INFORMATION
  Report Type: 
  Country: None (occurrence: None)
  Receive Date: 20070321
  Receipt Date: 20070308
  Transmission Date: 20070707
  Serious: Yes (Hospitalization)
  Sender: FDA-Public Use
  Company Number: HQWYE152114DEC06

PATIENT
  Sex: Female
  Weight: 61.5 kg

DRUGS (3)
  1. ENBREL [Suspect]
     Indication: ANKYLOSING SPONDYLITIS
     Dosage: 50 MG
     Dates: start: 20061016, end: 20061211
  2. YASMIN [Suspect]
     Indication: CONTRACEPTION
     Dosage: ETHINYL ESTRADIOL 30 MCG + DROSPERINONE 3 MG
     Dates: start: 20000101
  3. DICLOFENAC SODIUM [Concomitant]
     Indication: ANKYLOSING SPONDYLITIS
     Dates: start: 20060501

REACTIONS (2)
  - EYELID PTOSIS [None]
  - HEMIPARESIS [None]
